FAERS Safety Report 19515027 (Version 1)
Quarter: 2021Q3

REPORT INFORMATION
  Report Type: Spontaneous
  Country: US (occurrence: US)
  Receive Date: 20210709
  Receipt Date: 20210709
  Transmission Date: 20211014
  Serious: Yes (Other)
  Sender: FDA-Public Use
  Company Number: US-TEVA-2021-US-1930369

PATIENT
  Sex: Female

DRUGS (2)
  1. DEPAKOTE [Interacting]
     Active Substance: DIVALPROEX SODIUM
     Route: 065
  2. AUSTEDO [Suspect]
     Active Substance: DEUTETRABENAZINE
     Route: 065

REACTIONS (5)
  - Anal incontinence [Recovered/Resolved]
  - Loss of personal independence in daily activities [Recovered/Resolved]
  - Urinary incontinence [Recovered/Resolved]
  - Gait inability [Recovered/Resolved]
  - Drug interaction [Unknown]
